FAERS Safety Report 7861213-X (Version None)
Quarter: 2011Q4

REPORT INFORMATION
  Report Type: 
  Country: None (occurrence: None)
  Receive Date: 20111027
  Receipt Date: 20111018
  Transmission Date: 20120403
  Serious: Yes (Hospitalization, Other)
  Sender: FDA-Public Use
  Company Number: US-ASTRAZENECA-2011SE47066

PATIENT
  Age: 83 Year
  Sex: Female
  Weight: 89.2 kg

DRUGS (12)
  1. PRILOSEC [Concomitant]
     Route: 048
  2. CALCIUM CARBONATE/VITAMIN D3 [Concomitant]
     Dosage: 600 + D PO 2 TIMES DAILY
     Route: 048
  3. COUMADIN [Concomitant]
  4. ARIMIDEX [Suspect]
     Indication: BREAST CANCER
     Route: 048
     Dates: start: 20090501
  5. ASPIRIN [Concomitant]
     Route: 048
  6. CLARITIN [Concomitant]
     Route: 048
  7. VITAMIN D [Concomitant]
     Dosage: 400 UNITS
     Route: 048
  8. METHYLPREDNISOLONE ACETATE [Concomitant]
     Route: 014
     Dates: start: 20110705
  9. TENORMIN [Concomitant]
     Route: 048
  10. DULCOLAX ORAL [Concomitant]
     Dosage: TWO TABLETS
     Route: 048
  11. FISH OIL [Concomitant]
  12. FLUTICASONE PROPIONATE [Concomitant]
     Dosage: 50 MCG 2 SPRAY IN EACT NOSTRIL DAILY

REACTIONS (13)
  - CARDIAC FAILURE CONGESTIVE [None]
  - HYPERCHOLESTEROLAEMIA [None]
  - ARTHRALGIA [None]
  - MALAISE [None]
  - PNEUMONIA [None]
  - OSTEOARTHRITIS [None]
  - ATRIAL FIBRILLATION [None]
  - DYSPHONIA [None]
  - CORONARY ARTERY DISEASE [None]
  - GASTROOESOPHAGEAL REFLUX DISEASE [None]
  - GOUT [None]
  - ARTHRITIS [None]
  - ALOPECIA [None]
